FAERS Safety Report 6566974-8 (Version None)
Quarter: 2010Q1

REPORT INFORMATION
  Report Type: 
  Country: None (occurrence: None)
  Receive Date: 20100202
  Receipt Date: 20090420
  Transmission Date: 20100710
  Serious: Yes (Congenital Anomaly, Other)
  Sender: FDA-Public Use
  Company Number: SE-CELGENEUS-150-20484-10011871

PATIENT
  Sex: Female
  Weight: 2.62 kg

DRUGS (4)
  1. INNOHEP [Suspect]
     Route: 064
     Dates: start: 20060701, end: 20070327
  2. PETHIDINE HYDROCHLORIDE [Concomitant]
     Route: 064
     Dates: start: 20070328, end: 20070328
  3. BRICANYL [Concomitant]
     Route: 064
     Dates: start: 20070328, end: 20070328
  4. SYNTOCINON [Concomitant]
     Route: 064
     Dates: start: 20070329, end: 20070329

REACTIONS (2)
  - DRUG EXPOSURE DURING PREGNANCY [None]
  - TRISOMY 21 [None]
